FAERS Safety Report 6821363-3 (Version None)
Quarter: 2010Q3

REPORT INFORMATION
  Report Type: 
  Country: None (occurrence: None)
  Receive Date: 20100707
  Receipt Date: 20100624
  Transmission Date: 20110219
  Serious: Yes (Death)
  Sender: FDA-Public Use
  Company Number: CO-GENENTECH-303577

PATIENT
  Sex: Male

DRUGS (1)
  1. MABTHERA [Suspect]
     Indication: RENAL TRANSPLANT
     Dosage: 1000 MG, UNK
     Route: 042
     Dates: start: 20080824, end: 20080910

REACTIONS (1)
  - CARDIOPULMONARY FAILURE [None]
